FAERS Safety Report 10335171 (Version 1)
Quarter: 2014Q3

REPORT INFORMATION
  Report Type: Spontaneous
  Country: US (occurrence: US)
  Receive Date: 20140723
  Receipt Date: 20140723
  Transmission Date: 20150326
  Serious: No
  Sender: FDA-Public Use
  Company Number: US-PFIZER INC-2014202785

PATIENT
  Age: 83 Year
  Sex: Female
  Weight: 89.34 kg

DRUGS (2)
  1. VITAMIN D [Concomitant]
     Active Substance: CHOLECALCIFEROL
     Dosage: UNK
  2. CELEBREX [Suspect]
     Active Substance: CELECOXIB
     Indication: ARTHRITIS
     Dosage: 200 MG, 1X/DAY

REACTIONS (5)
  - Pain in extremity [Unknown]
  - Arthropathy [Unknown]
  - Intervertebral disc disorder [Unknown]
  - Musculoskeletal pain [Unknown]
  - Gait disturbance [Unknown]
